FAERS Safety Report 14953428 (Version 1)
Quarter: 2018Q2

REPORT INFORMATION
  Report Type: Spontaneous
  Country: FR (occurrence: FR)
  Receive Date: 20180530
  Receipt Date: 20180530
  Transmission Date: 20180711
  Serious: Yes (Hospitalization, Other)
  Sender: FDA-Public Use
  Company Number: FR-JNJFOC-20180537283

PATIENT
  Age: 52 Year
  Sex: Male

DRUGS (6)
  1. XARELTO [Suspect]
     Active Substance: RIVAROXABAN
     Indication: PRODUCT USED FOR UNKNOWN INDICATION
     Route: 048
     Dates: start: 201803
  2. SEROPLEX [Concomitant]
     Active Substance: ESCITALOPRAM OXALATE
     Route: 065
  3. SERESTA [Concomitant]
     Active Substance: OXAZEPAM
     Route: 065
  4. NICOPATCH [Concomitant]
     Active Substance: NICOTINE
     Route: 065
  5. NOCTAMIDE [Suspect]
     Active Substance: LORMETAZEPAM
     Indication: PRODUCT USED FOR UNKNOWN INDICATION
     Route: 065
  6. AOTAL [Concomitant]
     Active Substance: ACAMPROSATE CALCIUM
     Route: 065

REACTIONS (5)
  - Pulmonary embolism [Recovering/Resolving]
  - Renal artery thrombosis [Unknown]
  - Renal hypertrophy [Recovering/Resolving]
  - Nephrolithiasis [Unknown]
  - Renal colic [Unknown]
